FAERS Safety Report 16750348 (Version 3)
Quarter: 2019Q3

REPORT INFORMATION
  Report Type: Spontaneous
  Country: US (occurrence: US)
  Receive Date: 20190828
  Receipt Date: 20190920
  Transmission Date: 20191005
  Serious: No
  Sender: FDA-Public Use
  Company Number: US-PFIZER INC-2019369815

PATIENT
  Age: 47 Year
  Sex: Female
  Weight: 64.85 kg

DRUGS (1)
  1. EFFEXOR XR [Suspect]
     Active Substance: VENLAFAXINE HYDROCHLORIDE
     Indication: DEPRESSION
     Dosage: UNK
     Route: 048
     Dates: start: 2016, end: 2016

REACTIONS (2)
  - Drug hypersensitivity [Unknown]
  - Hallucination [Unknown]
